FAERS Safety Report 10463583 (Version 1)
Quarter: 2014Q3

REPORT INFORMATION
  Report Type: Spontaneous
  Country: US (occurrence: None)
  Receive Date: 20140918
  Receipt Date: 20140918
  Transmission Date: 20150326
  Serious: No
  Sender: FDA-Public Use
  Company Number: None

PATIENT
  Sex: Male

DRUGS (1)
  1. AFINITOR [Suspect]
     Active Substance: EVEROLIMUS
     Route: 048
     Dates: start: 20140718

REACTIONS (3)
  - Nasal disorder [None]
  - Stomatitis [None]
  - Diarrhoea [None]
